FAERS Safety Report 22947870 (Version 2)
Quarter: 2024Q1

REPORT INFORMATION
  Report Type: Spontaneous
  Country: NO (occurrence: NO)
  Receive Date: 20230915
  Receipt Date: 20240111
  Transmission Date: 20240409
  Serious: Yes (Other)
  Sender: FDA-Public Use
  Company Number: None

PATIENT
  Age: 48 Year
  Sex: Male

DRUGS (1)
  1. SEPTOCAINE [Suspect]
     Active Substance: ARTICAINE HYDROCHLORIDE\EPINEPHRINE BITARTRATE
     Indication: Dental local anaesthesia
     Dosage: 1,8 ML INJECTED
     Route: 004
     Dates: start: 20230525, end: 20230525

REACTIONS (6)
  - Incorrect disposal of product [Recovered/Resolved]
  - Oral dysaesthesia [Recovered/Resolved]
  - Paraesthesia oral [Recovered/Resolved]
  - Peripheral nerve injury [Recovered/Resolved]
  - Oral dysaesthesia [Recovered/Resolved]
  - Paraesthesia oral [Recovered/Resolved]

NARRATIVE: CASE EVENT DATE: 20230525
